FAERS Safety Report 14637294 (Version 4)
Quarter: 2018Q2

REPORT INFORMATION
  Report Type: Report from Study
  Country: US (occurrence: US)
  Receive Date: 20180314
  Receipt Date: 20180620
  Transmission Date: 20180711
  Serious: Yes (Other)
  Sender: FDA-Public Use
  Company Number: US-UCBSA-2017046687

PATIENT
  Sex: Female

DRUGS (4)
  1. LEVETIRACETAM. [Suspect]
     Active Substance: LEVETIRACETAM
     Indication: SEIZURE
     Dosage: 1250 MG, 2X/DAY (BID)
  2. LAMICTAL [Concomitant]
     Active Substance: LAMOTRIGINE
     Indication: PRODUCT USED FOR UNKNOWN INDICATION
     Dosage: 25 MG, 2X/DAY (BID)
  3. LAMICTAL [Concomitant]
     Active Substance: LAMOTRIGINE
     Dosage: 75 MG DAILY DOSE (25 MG AM AND 50 MG PM), 2X/DAY (BID)
  4. CLOBAZAM [Concomitant]
     Active Substance: CLOBAZAM
     Indication: PARTIAL SEIZURES
     Dosage: 10 MG, ONCE DAILY (QD)

REACTIONS (9)
  - Partial seizures [Recovered/Resolved]
  - Rash [Unknown]
  - Speech disorder [Unknown]
  - Pruritus [Unknown]
  - Generalised tonic-clonic seizure [Unknown]
  - Mood swings [Unknown]
  - Paraesthesia [Unknown]
  - Thirst [Unknown]
  - Hypoaesthesia [Unknown]
